FAERS Safety Report 6928045-8 (Version None)
Quarter: 2010Q3

REPORT INFORMATION
  Report Type: 
  Country: None (occurrence: None)
  Receive Date: 20100816
  Receipt Date: 20100816
  Transmission Date: 20110219
  Serious: No
  Sender: FDA-Public Use
  Company Number: None

PATIENT
  Age: 51 Year
  Sex: Male
  Weight: 90.7194 kg

DRUGS (2)
  1. ADVAIR DISKUS 500/50 [Suspect]
     Indication: ASTHMA
     Dosage: ONE PUFF TWICE DAILY PO
     Route: 048
     Dates: start: 19991120, end: 20100715
  2. ADVAIR DISKUS 500/50 [Suspect]
     Indication: HYPERSENSITIVITY
     Dosage: ONE PUFF TWICE DAILY PO
     Route: 048
     Dates: start: 19991120, end: 20100715

REACTIONS (2)
  - CATARACT [None]
  - INTRAOCULAR PRESSURE INCREASED [None]
